FAERS Safety Report 5913043-3 (Version None)
Quarter: 2008Q4

REPORT INFORMATION
  Report Type: 
  Country: None (occurrence: None)
  Receive Date: 20081006
  Receipt Date: 20080924
  Transmission Date: 20090506
  Serious: Yes (Death)
  Sender: FDA-Public Use
  Company Number: CHPA2008US16240

PATIENT
  Age: 6 Month
  Sex: Female

DRUGS (3)
  1. DEXTROMETHORPHAN HYDROBROMIDE [Suspect]
  2. PSEUDOEPHEDRINE HCL [Suspect]
  3. ACETAMINOPHEN [Suspect]

REACTIONS (5)
  - BRONCHOPNEUMONIA [None]
  - DRUG INTERACTION [None]
  - DRUG TOXICITY [None]
  - EMPYEMA [None]
  - OVERDOSE [None]
